FAERS Safety Report 7536973-8 (Version None)
Quarter: 2011Q2

REPORT INFORMATION
  Report Type: 
  Country: None (occurrence: None)
  Receive Date: 20110609
  Receipt Date: 20110601
  Transmission Date: 20111010
  Serious: Yes (Hospitalization)
  Sender: FDA-Public Use
  Company Number: US-JNJFOC-20110503573

PATIENT
  Sex: Female
  Weight: 58.97 kg

DRUGS (5)
  1. TYLENOL-500 [Suspect]
     Indication: HEADACHE
     Route: 048
     Dates: start: 20110301
  2. TEGRETOL [Concomitant]
     Route: 048
  3. TYLENOL-500 [Suspect]
     Route: 048
  4. MOTRIN IB [Suspect]
     Indication: SINUSITIS
     Route: 048
     Dates: start: 20110321, end: 20110328
  5. MOTRIN IB [Suspect]
     Indication: PYREXIA
     Route: 048
     Dates: start: 20110321, end: 20110328

REACTIONS (1)
  - RENAL TUBULAR NECROSIS [None]
